FAERS Safety Report 19163569 (Version 2)
Quarter: 2022Q1

REPORT INFORMATION
  Report Type: Other
  Country: DE (occurrence: None)
  Receive Date: 20210421
  Receipt Date: 20220216
  Transmission Date: 20220424
  Serious: No
  Sender: FDA-Public Use
  Company Number: DE-ROCHE-2815153

PATIENT
  Age: 34 Year
  Sex: Female

DRUGS (9)
  1. OCREVUS [Suspect]
     Active Substance: OCRELIZUMAB
     Indication: Relapsing-remitting multiple sclerosis
     Dosage: FIRST INITIAL DOSE
     Route: 042
     Dates: start: 201803
  2. OCREVUS [Suspect]
     Active Substance: OCRELIZUMAB
     Dosage: SECOND INITIAL DOSE
     Route: 042
     Dates: start: 201803
  3. OCREVUS [Suspect]
     Active Substance: OCRELIZUMAB
     Dosage: FIRST MAINTENANCE DOSE
     Route: 042
     Dates: start: 201809
  4. OCREVUS [Suspect]
     Active Substance: OCRELIZUMAB
     Dosage: SECOND MAINTENANCE DOSE
     Route: 042
     Dates: start: 201903
  5. OCREVUS [Suspect]
     Active Substance: OCRELIZUMAB
     Dosage: THIRD MAINTENANCE DOSE
     Route: 042
     Dates: start: 201909
  6. OCREVUS [Suspect]
     Active Substance: OCRELIZUMAB
     Dosage: FOURTH MAINTENANCE DOSE
     Route: 042
     Dates: start: 202003
  7. OCREVUS [Suspect]
     Active Substance: OCRELIZUMAB
     Dosage: FIFTH MAINTENANCE DOSE
     Route: 042
     Dates: start: 202009
  8. BACLOFEN [Concomitant]
     Active Substance: BACLOFEN
  9. CORTISONE [Concomitant]
     Active Substance: CORTISONE

REACTIONS (3)
  - Lymphadenopathy [Recovered/Resolved]
  - Bronchitis [Recovered/Resolved]
  - Nasal herpes [Recovered/Resolved]

NARRATIVE: CASE EVENT DATE: 20210301
